FAERS Safety Report 5934395-4 (Version None)
Quarter: 2008Q4

REPORT INFORMATION
  Report Type: 
  Country: None (occurrence: None)
  Receive Date: 20081029
  Receipt Date: 20081027
  Transmission Date: 20090506
  Serious: Yes (Death, Other)
  Sender: FDA-Public Use
  Company Number: PHBS2008TW06126

PATIENT
  Age: 3 Year
  Sex: Male

DRUGS (2)
  1. CYCLOSPORINE [Suspect]
     Indication: LIVER TRANSPLANT
  2. FK 506 [Suspect]

REACTIONS (4)
  - CYTOMEGALOVIRUS INFECTION [None]
  - LIVER TRANSPLANT [None]
  - THROMBOTIC THROMBOCYTOPENIC PURPURA [None]
  - VENOOCCLUSIVE DISEASE [None]
